FAERS Safety Report 6178809-6 (Version None)
Quarter: 2009Q2

REPORT INFORMATION
  Report Type: 
  Country: None (occurrence: None)
  Receive Date: 20090504
  Receipt Date: 20090312
  Transmission Date: 20091009
  Serious: No
  Sender: FDA-Public Use
  Company Number: US-ALEXION-A200900199

PATIENT
  Sex: Male

DRUGS (21)
  1. SOLIRIS [Suspect]
     Indication: PAROXYSMAL NOCTURNAL HAEMOGLOBINURIA
     Dosage: 600 MG, QW
     Route: 042
     Dates: start: 20070502, end: 20070523
  2. SOLIRIS [Suspect]
     Dosage: 900 MG, Q2W
     Route: 042
     Dates: start: 20070530
  3. SOLIRIS [Suspect]
     Dosage: 900 MG, Q12D
  4. FRAGMIN                            /01708302/ [Concomitant]
     Dosage: 12500 IU, QD
     Route: 058
  5. BENADRYL [Concomitant]
     Dosage: 50 MG, PRN, Q6H
     Route: 048
  6. SPIRIVA [Concomitant]
     Dosage: 18 UG, QD
  7. ADVAIR HFA [Concomitant]
     Dosage: 250/50 1 INHALATION, BID
  8. ALBUTEROL [Concomitant]
     Dosage: 2.5 MG, PRN, QID, NEBULIZER
  9. ALBUTEROL [Concomitant]
     Dosage: 2 PUFFS, PRN, QID, INHALATION
  10. TYLENOL (CAPLET) [Concomitant]
     Dosage: 650 MG, PRN, Q6H
     Route: 048
  11. SENNA-MINT WAF [Concomitant]
     Dosage: 2 TABS, PRN, BID
     Route: 048
  12. COMPAZINE                          /00013302/ [Concomitant]
     Dosage: 10 MG, PRN, Q4H
     Route: 048
  13. FLONASE [Concomitant]
     Dosage: 1 SPRAY, QD
     Route: 045
  14. SEROQUEL [Concomitant]
     Dosage: 50 MG, PRN, Q4H
     Route: 048
  15. PROTONIX                           /01263201/ [Concomitant]
     Dosage: 40 MG, QD
     Route: 048
  16. CYMBALTA [Concomitant]
     Dosage: 60 MG, QD
     Route: 048
  17. FOLIC ACID [Concomitant]
     Dosage: 1 MG, QD
     Route: 048
  18. CLONAZEPAM [Concomitant]
     Dosage: 1 MG, QD
     Route: 048
  19. METHADONE [Concomitant]
     Dosage: 10 MG, TID, Q8H
     Route: 048
  20. POTASSIUM CHLORIDE [Concomitant]
     Dosage: 20 MEQ, QD
     Route: 048
  21. MEDICATION UNKNOWN [Suspect]

REACTIONS (3)
  - HAIR TEXTURE ABNORMAL [None]
  - RASH [None]
  - UNEVALUABLE EVENT [None]
